FAERS Safety Report 8458056-5 (Version None)
Quarter: 2012Q2

REPORT INFORMATION
  Report Type: 
  Country: None (occurrence: None)
  Receive Date: 20120622
  Receipt Date: 20120612
  Transmission Date: 20120825
  Serious: Yes (Other)
  Sender: FDA-Public Use
  Company Number: GB-JNJFOC-20120518074

PATIENT
  Sex: Female

DRUGS (3)
  1. SIMPONI [Suspect]
     Indication: PSORIATIC ARTHROPATHY
     Route: 058
     Dates: start: 20120315
  2. SIMPONI [Suspect]
     Route: 058
     Dates: start: 20120515, end: 20120501
  3. METHOTREXATE [Concomitant]
     Route: 048

REACTIONS (1)
  - HERPES ZOSTER [None]
